FAERS Safety Report 24551066 (Version 2)
Quarter: 2024Q4

REPORT INFORMATION
  Report Type: Spontaneous
  Country: FR (occurrence: FR)
  Receive Date: 20241025
  Receipt Date: 20241209
  Transmission Date: 20250114
  Serious: Yes (Other)
  Sender: MYLAN
  Company Number: FR-MYLANLABS-2024M1092314

PATIENT
  Age: 65 Year
  Sex: Male
  Weight: 90 kg

DRUGS (2)
  1. NOREPINEPHRINE BITARTRATE [Suspect]
     Active Substance: NOREPINEPHRINE BITARTRATE
     Indication: Hypotension
     Dosage: UNK (DILUTED TO 16 MG/L (ONE  AMPOULE OF 8 MG IN 500 ML OF 0.9% NACL))
     Route: 042
     Dates: start: 20240923, end: 20240923
  2. AMLODIPINE [Concomitant]
     Active Substance: AMLODIPINE BESYLATE
     Dosage: UNK
     Route: 065

REACTIONS (1)
  - Drug ineffective [Recovered/Resolved]

NARRATIVE: CASE EVENT DATE: 20240923
